FAERS Safety Report 25599361 (Version 2)
Quarter: 2025Q3

REPORT INFORMATION
  Report Type: Spontaneous
  Country: US (occurrence: US)
  Receive Date: 20250724
  Receipt Date: 20250729
  Transmission Date: 20251021
  Serious: No
  Sender: BAUSCH AND LOMB
  Company Number: US-BAUSCHBL-2025BNL012858

PATIENT
  Age: 78 Year
  Sex: Female

DRUGS (2)
  1. MIEBO [Suspect]
     Active Substance: PERFLUOROHEXYLOCTANE
     Indication: Dry eye
     Dosage: PRESCRIBED AS 1 DROP IN EACH EYE TWICE A DAY
     Route: 047
     Dates: start: 202506
  2. SYSTANE (HYPROMELLOSE 2910 (4000 MPA.S)) [Concomitant]
     Active Substance: HYPROMELLOSE 2910 (4000 MPA.S)
     Indication: Product used for unknown indication
     Dosage: GTT QD
     Route: 047

REACTIONS (9)
  - Eye discharge [Recovered/Resolved]
  - Vision blurred [Recovered/Resolved]
  - Product packaging quantity issue [Unknown]
  - Prescribed underdose [Unknown]
  - Liquid product physical issue [Unknown]
  - Circumstance or information capable of leading to medication error [Unknown]
  - Product complaint [Unknown]
  - Product knowledge deficit [Unknown]
  - Product use issue [Unknown]

NARRATIVE: CASE EVENT DATE: 20250101
